FAERS Safety Report 10652403 (Version 6)
Quarter: 2015Q2

REPORT INFORMATION
  Report Type: Report from Study
  Country: CZ (occurrence: CZ)
  Receive Date: 20141215
  Receipt Date: 20150506
  Transmission Date: 20150821
  Serious: Yes (Death, Life-Threatening, Hospitalization, Disabling, Other)
  Sender: FDA-Public Use
  Company Number: CZ-ACTELION-A-CH2014-109039

PATIENT
  Age: 27 Year
  Sex: Female
  Weight: 40 kg

DRUGS (2)
  1. TRACLEER [Suspect]
     Active Substance: BOSENTAN\BOSENTAN MONOHYDRATE
     Indication: SCLERODERMA ASSOCIATED DIGITAL ULCER
     Dosage: 125 MG, BID
     Route: 048
     Dates: start: 20141002, end: 20141111
  2. SORBIFER [Concomitant]
     Active Substance: FERROUS SULFATE\FERROUS SULFATE, DRIED
     Dosage: 100 MG, OD
     Dates: start: 20140906, end: 20141110

REACTIONS (9)
  - Dyspepsia [Unknown]
  - Cardiac failure acute [Fatal]
  - Pain [Unknown]
  - Pulmonary oedema [Not Recovered/Not Resolved]
  - Peripheral vascular disorder [Unknown]
  - Anaemia [Unknown]
  - Cardiac arrest [Not Recovered/Not Resolved]
  - Apallic syndrome [Not Recovered/Not Resolved]
  - Acute left ventricular failure [Not Recovered/Not Resolved]

NARRATIVE: CASE EVENT DATE: 20141111
